FAERS Safety Report 4395409-9 (Version None)
Quarter: 2004Q3

REPORT INFORMATION
  Report Type: 
  Country: None (occurrence: None)
  Receive Date: 20040707
  Receipt Date: 20040623
  Transmission Date: 20050211
  Serious: Yes (Life-Threatening, Hospitalization, Disabling)
  Sender: FDA-Public Use
  Company Number: 99P-056-0077132-00

PATIENT
  Age: 28 Year
  Sex: Female

DRUGS (8)
  1. BIAXIN [Suspect]
     Indication: NASOPHARYNGITIS
     Dosage: 500 MG, QD, PER ORAL
     Route: 048
     Dates: start: 19980120, end: 19980121
  2. ACETAMINOPHEN [Concomitant]
  3. ERDOSTEINE (EDIREL) [Concomitant]
  4. PHENIRAMINE (PHENIRAMINE, PARACETAMOL, ASCORBIC ACID) [Concomitant]
  5. IBUPROFEN [Concomitant]
  6. ASPEGIC (LYSINE ACETYLSALICYLATE) [Concomitant]
  7. AMIKACIN [Concomitant]
  8. AMOXICILLIN [Concomitant]

REACTIONS (11)
  - ALOPECIA [None]
  - ELECTROLYTE IMBALANCE [None]
  - IMPAIRED WORK ABILITY [None]
  - MADAROSIS [None]
  - ONYCHOMADESIS [None]
  - PNEUMONIA [None]
  - PUNCTATE KERATITIS [None]
  - SKIN DESQUAMATION [None]
  - SYMBLEPHARON [None]
  - TOXIC EPIDERMAL NECROLYSIS [None]
  - VISUAL ACUITY REDUCED [None]
